FAERS Safety Report 8088999-6 (Version None)
Quarter: 2012Q1

REPORT INFORMATION
  Report Type: 
  Country: None (occurrence: None)
  Receive Date: 20120128
  Receipt Date: 20110809
  Transmission Date: 20120608
  Serious: Yes (Hospitalization)
  Sender: FDA-Public Use
  Company Number: PR-ABBOTT-11P-131-0728610-00

PATIENT
  Age: 23 Year
  Sex: Female

DRUGS (4)
  1. PREDNISONE TAB [Concomitant]
     Indication: PRODUCT USED FOR UNKNOWN INDICATION
     Route: 048
  2. HUMIRA [Suspect]
     Indication: CROHN'S DISEASE
     Route: 058
     Dates: start: 20110301
  3. CIPROFLOXACIN [Concomitant]
     Indication: ABSCESS
     Route: 048
  4. PENTASA [Concomitant]
     Indication: CROHN'S DISEASE
     Dosage: 2250MG DAILY, 3 TABS 3 TIMES DAILY
     Route: 048

REACTIONS (1)
  - ABSCESS [None]
